FAERS Safety Report 6067237-X (Version None)
Quarter: 2009Q1

REPORT INFORMATION
  Report Type: 
  Country: None (occurrence: None)
  Receive Date: 20090204
  Receipt Date: 20090204
  Transmission Date: 20090719
  Serious: Yes (Hospitalization)
  Sender: FDA-Public Use
  Company Number: None

PATIENT
  Sex: Female
  Weight: 78.4 kg

DRUGS (4)
  1. CISPLATIN [Suspect]
     Dosage: 184 MG
     Dates: end: 20081103
  2. ASPIRIN [Concomitant]
  3. CHOLESTYRAMINE [Concomitant]
  4. FOLIC ACID [Concomitant]

REACTIONS (3)
  - ASTHENIA [None]
  - DEHYDRATION [None]
  - FALL [None]
